FAERS Safety Report 12548164 (Version 1)
Quarter: 2016Q3

REPORT INFORMATION
  Report Type: Spontaneous
  Country: US (occurrence: US)
  Receive Date: 20160712
  Receipt Date: 20160712
  Transmission Date: 20161109
  Serious: No
  Sender: FDA-Public Use
  Company Number: US-PFIZER INC-2016284102

PATIENT
  Age: 60 Year
  Sex: Female

DRUGS (1)
  1. GABAPENTIN. [Suspect]
     Active Substance: GABAPENTIN
     Indication: TRIGEMINAL NEURALGIA
     Dosage: 75 MG, 2X/DAY
     Dates: start: 201410, end: 201505

REACTIONS (5)
  - Abdominal distension [Unknown]
  - Vomiting [Unknown]
  - Dyspepsia [Unknown]
  - Product use issue [Unknown]
  - Dizziness [Unknown]

NARRATIVE: CASE EVENT DATE: 201410
